FAERS Safety Report 4574124-2 (Version None)
Quarter: 2005Q1

REPORT INFORMATION
  Report Type: 
  Country: None (occurrence: None)
  Receive Date: 20050208
  Receipt Date: 20041022
  Transmission Date: 20050727
  Serious: No
  Sender: FDA-Public Use
  Company Number: US-GLAXOSMITHKLINE-A0530890A

PATIENT
  Age: 36 Year
  Sex: Female
  Weight: 50 kg

DRUGS (3)
  1. PAXIL [Suspect]
     Indication: DRUG USE FOR UNKNOWN INDICATION
     Dosage: 60MG PER DAY
     Route: 048
     Dates: start: 20040716, end: 20041020
  2. SEROQUEL [Concomitant]
     Dosage: 75MG AT NIGHT
     Route: 048
     Dates: start: 20040805
  3. ABILIFY [Concomitant]
     Dosage: 10MG AT NIGHT
     Route: 048
     Dates: start: 20040805, end: 20041010

REACTIONS (1)
  - ALOPECIA [None]
